FAERS Safety Report 7732749-7 (Version None)
Quarter: 2011Q3

REPORT INFORMATION
  Report Type: 
  Country: None (occurrence: None)
  Receive Date: 20110829
  Receipt Date: 20110824
  Transmission Date: 20111222
  Serious: Yes (Hospitalization, Other)
  Sender: FDA-Public Use
  Company Number: 2010024852

PATIENT
  Age: 38 Year
  Sex: Female
  Weight: 109.3 kg

DRUGS (52)
  1. HIZENTRA [Suspect]
  2. GLYBURIDE [Concomitant]
  3. PULMICORT [Concomitant]
  4. OXYCODONE-APAP (OXYCODONE/APAP) [Concomitant]
  5. ERYTHROMYCIN [Concomitant]
  6. TOPAMAX [Concomitant]
  7. METHOCARBAMOL [Concomitant]
  8. VITAMIN B12 [Concomitant]
  9. HIZENTRA [Suspect]
     Indication: IMMUNODEFICIENCY COMMON VARIABLE
     Dosage: SEE IMAGE
     Route: 058
     Dates: start: 20110603
  10. HIZENTRA [Suspect]
     Indication: IMMUNODEFICIENCY COMMON VARIABLE
     Dosage: SEE IMAGE
     Route: 058
     Dates: start: 20110724, end: 20110724
  11. HIZENTRA [Suspect]
     Indication: IMMUNODEFICIENCY COMMON VARIABLE
     Dosage: SEE IMAGE
     Route: 058
     Dates: start: 20100526
  12. HIZENTRA [Suspect]
     Indication: IMMUNODEFICIENCY COMMON VARIABLE
     Dosage: SEE IMAGE
     Route: 058
     Dates: start: 20110425
  13. HIZENTRA [Suspect]
     Indication: IMMUNODEFICIENCY COMMON VARIABLE
     Dosage: SEE IMAGE
     Route: 058
     Dates: start: 20110724
  14. HIZENTRA [Suspect]
     Indication: IMMUNODEFICIENCY COMMON VARIABLE
     Dosage: SEE IMAGE
     Route: 058
     Dates: start: 20110425
  15. HIZENTRA [Suspect]
     Indication: IMMUNODEFICIENCY COMMON VARIABLE
     Dosage: SEE IMAGE
     Route: 058
     Dates: start: 20110425
  16. HIZENTRA [Suspect]
     Indication: IMMUNODEFICIENCY COMMON VARIABLE
     Dosage: SEE IMAGE
     Route: 058
     Dates: start: 20110603
  17. HIZENTRA [Suspect]
     Indication: IMMUNODEFICIENCY COMMON VARIABLE
     Dosage: SEE IMAGE
     Route: 058
     Dates: start: 20110724, end: 20110724
  18. HIZENTRA [Suspect]
     Indication: IMMUNODEFICIENCY COMMON VARIABLE
     Dosage: SEE IMAGE
     Route: 058
     Dates: start: 20110603
  19. HIZENTRA [Suspect]
     Indication: IMMUNODEFICIENCY COMMON VARIABLE
     Dosage: SEE IMAGE
     Route: 058
     Dates: start: 20110815
  20. HIZENTRA [Suspect]
     Indication: IMMUNODEFICIENCY COMMON VARIABLE
     Dosage: SEE IMAGE
     Route: 058
     Dates: start: 20110815
  21. HIZENTRA [Suspect]
  22. HIZENTRA [Suspect]
  23. HIZENTRA [Suspect]
  24. HIZENTRA [Suspect]
  25. ALLEGRA [Concomitant]
  26. DUONEB [Concomitant]
  27. HIZENTRA [Suspect]
  28. HIZENTRA [Suspect]
  29. CHOLESTYRAMINE (COLESTYRAMINE) [Concomitant]
  30. PHENERGAN [Concomitant]
  31. ASPIRIN [Concomitant]
  32. ATIVAN [Concomitant]
  33. ACCOLATE [Concomitant]
  34. PERCOCET [Concomitant]
  35. EFFEXOR XR [Concomitant]
  36. CIPRO [Concomitant]
  37. HIZENTRA [Suspect]
  38. LASIX [Concomitant]
  39. HIZENTRA [Suspect]
  40. SEROQUEL [Concomitant]
  41. METFORMIN HCL [Concomitant]
  42. RISPERDAL [Concomitant]
  43. HIZENTRA [Suspect]
  44. HIZENTRA [Suspect]
  45. CARDIZEM [Concomitant]
  46. NORCO [Concomitant]
  47. LUVOX [Concomitant]
  48. TOBI [Concomitant]
  49. HIZENTRA [Suspect]
  50. HIZENTRA [Suspect]
  51. PREVACID [Concomitant]
  52. LUVOX [Concomitant]

REACTIONS (13)
  - ARTHRALGIA [None]
  - LUNG INFECTION [None]
  - INFUSION SITE PAIN [None]
  - PROTEUS INFECTION [None]
  - PSEUDOMONAS INFECTION [None]
  - ORAL HERPES [None]
  - MENINGITIS ASEPTIC [None]
  - INFUSION SITE ERYTHEMA [None]
  - MIGRAINE [None]
  - FATIGUE [None]
  - INFUSION SITE WARMTH [None]
  - VOMITING [None]
  - PHARYNGITIS [None]
